FAERS Safety Report 25758535 (Version 2)
Quarter: 2025Q4

REPORT INFORMATION
  Report Type: Report from Study
  Country: GB (occurrence: GB)
  Receive Date: 20250904
  Receipt Date: 20251211
  Transmission Date: 20260118
  Serious: Yes (Other)
  Sender: AMGEN
  Company Number: GB-Vifor (International) Inc.-VIT-2024-06903

PATIENT
  Age: 58 Year
  Sex: Male
  Weight: 93.5 kg

DRUGS (23)
  1. AVACOPAN [Suspect]
     Active Substance: AVACOPAN
     Indication: Anti-neutrophil cytoplasmic antibody positive vasculitis
     Dosage: 30,MG,BID
     Route: 048
     Dates: start: 20240620, end: 20250102
  2. AVACOPAN [Suspect]
     Active Substance: AVACOPAN
     Dosage: 30 MG, BID
     Route: 048
     Dates: start: 20250110, end: 20250619
  3. PREDNISOLONE [Concomitant]
     Active Substance: PREDNISOLONE
     Indication: Anti-neutrophil cytoplasmic antibody positive vasculitis
     Dosage: 60,MG,QD
     Route: 048
     Dates: start: 20240611, end: 20240619
  4. PREDNISOLONE [Concomitant]
     Active Substance: PREDNISOLONE
     Dosage: 40,MG,QD
     Route: 048
     Dates: start: 20240620, end: 20240623
  5. PREDNISOLONE [Concomitant]
     Active Substance: PREDNISOLONE
     Dosage: 30,MG,QD
     Route: 048
     Dates: start: 20240624, end: 20240703
  6. PREDNISOLONE [Concomitant]
     Active Substance: PREDNISOLONE
     Dosage: COMPLETION OF PLANNED COURSE
     Route: 048
     Dates: start: 20240704, end: 20240822
  7. PREDNISOLONE [Concomitant]
     Active Substance: PREDNISOLONE
     Dosage: 15,MG,QD
     Route: 048
     Dates: start: 20240823, end: 20240906
  8. PREDNISOLONE [Concomitant]
     Active Substance: PREDNISOLONE
     Dosage: 15MG AND 10MG ON ALTERNATIVE DAYS
     Route: 048
     Dates: start: 20240907, end: 202409
  9. PREDNISOLONE [Concomitant]
     Active Substance: PREDNISOLONE
     Dosage: 10 MG, OD
     Route: 048
     Dates: start: 202409, end: 202410
  10. PREDNISOLONE [Concomitant]
     Active Substance: PREDNISOLONE
     Dosage: 10MG AND 5MG ONCE DAILY ON ALTERNATIVE
     Route: 048
     Dates: start: 20241031, end: 20241114
  11. PREDNISOLONE [Concomitant]
     Active Substance: PREDNISOLONE
     Dosage: 5 MG
     Route: 048
     Dates: start: 202411, end: 20250212
  12. PREDNISOLONE [Concomitant]
     Active Substance: PREDNISOLONE
     Dosage: 2.5 MG, OD
     Route: 048
     Dates: start: 20250213, end: 20250619
  13. RITUXIMAB [Concomitant]
     Active Substance: RITUXIMAB
     Indication: Anti-neutrophil cytoplasmic antibody positive vasculitis
     Dosage: COMPLETION OF PLANNED COURSE
     Route: 040
     Dates: start: 20240613, end: 20240613
  14. RITUXIMAB [Concomitant]
     Active Substance: RITUXIMAB
     Dosage: COMPLETION OF PLANNED COURSE
     Route: 040
     Dates: start: 20240627, end: 20240627
  15. RITUXIMAB [Concomitant]
     Active Substance: RITUXIMAB
     Dosage: 500 MG, OD
     Route: 040
     Dates: start: 20241203, end: 20241203
  16. RITUXIMAB [Concomitant]
     Active Substance: RITUXIMAB
     Dosage: 500 MG, SINGLE
     Route: 040
     Dates: start: 20250603, end: 20250603
  17. CYCLOPHOSPHAMIDE [Concomitant]
     Active Substance: CYCLOPHOSPHAMIDE
     Indication: Anti-neutrophil cytoplasmic antibody positive vasculitis
     Dosage: SINGLE IV INFUSION  COMPLETION OF PLANNED COURSE
     Route: 040
     Dates: start: 20240806, end: 20240806
  18. CYCLOPHOSPHAMIDE [Concomitant]
     Active Substance: CYCLOPHOSPHAMIDE
     Dosage: SINGLE IV INFUSION  COMPLETION OF PLANNED COURSE
     Route: 040
     Dates: start: 20240820, end: 20240820
  19. CYCLOPHOSPHAMIDE [Concomitant]
     Active Substance: CYCLOPHOSPHAMIDE
     Dosage: SINGLE IV INFUSION  COMPLETION OF PLANNED COURSE
     Route: 040
     Dates: start: 20240903, end: 20240903
  20. CYCLOPHOSPHAMIDE [Concomitant]
     Active Substance: CYCLOPHOSPHAMIDE
     Dosage: SINGLE IV INFUSION  COMPLETION OF PLANNED COURSE
     Route: 040
     Dates: start: 20240924, end: 20240924
  21. CYCLOPHOSPHAMIDE [Concomitant]
     Active Substance: CYCLOPHOSPHAMIDE
     Dosage: 1200 MG, SINGLE
     Route: 040
     Dates: start: 20241015, end: 20241015
  22. CYCLOPHOSPHAMIDE [Concomitant]
     Active Substance: CYCLOPHOSPHAMIDE
     Dosage: 1060 UNK
     Route: 040
     Dates: start: 20241105, end: 20241105
  23. CYCLOPHOSPHAMIDE [Concomitant]
     Active Substance: CYCLOPHOSPHAMIDE
     Dosage: UNK
     Route: 065

REACTIONS (2)
  - Lower respiratory tract infection [Recovered/Resolved]
  - Blood cholesterol increased [Recovering/Resolving]

NARRATIVE: CASE EVENT DATE: 20240711
